FAERS Safety Report 5562503-6 (Version None)
Quarter: 2007Q4

REPORT INFORMATION
  Report Type: 
  Country: None (occurrence: None)
  Receive Date: 20071217
  Receipt Date: 20071213
  Transmission Date: 20080405
  Serious: Yes (Hospitalization)
  Sender: FDA-Public Use
  Company Number: DE-WYE-G00768707

PATIENT
  Sex: Female
  Weight: 75 kg

DRUGS (3)
  1. TREVILOR RETARD [Suspect]
     Dosage: MAXIMAL 8 CAPSULES (OVERDOSE AMOUNT MAXIMAL 600 MG)
     Route: 048
     Dates: start: 20071212, end: 20071212
  2. MIRTAZAPINE [Suspect]
     Dosage: MAXIMAL 80 TABLETS (OVERDOSE AMOUNT 2400 MG)
     Route: 048
     Dates: start: 20071212, end: 20071212
  3. DOXEPIN HCL [Suspect]
     Dosage: MAXIMAL 50 TABLETS (OVERDOSE AMOUNT 5000 MG)
     Route: 048
     Dates: start: 20071212, end: 20071212

REACTIONS (4)
  - COMA [None]
  - CONVULSION [None]
  - GASTROINTESTINAL SOUNDS ABNORMAL [None]
  - INTENTIONAL OVERDOSE [None]
